FAERS Safety Report 5606629-7 (Version None)
Quarter: 2008Q1

REPORT INFORMATION
  Report Type: 
  Country: None (occurrence: None)
  Receive Date: 20080129
  Receipt Date: 20080124
  Transmission Date: 20080703
  Serious: Yes (Disabling)
  Sender: FDA-Public Use
  Company Number: JP-SANOFI-SYNTHELABO-F01200800117

PATIENT
  Sex: Female

DRUGS (10)
  1. PRIMPERAN INJ [Concomitant]
     Dosage: UNK
     Dates: start: 20070622
  2. NASEA [Concomitant]
     Dosage: UNK
     Dates: start: 20070622
  3. DECADRON [Concomitant]
     Dosage: UNK
     Dates: start: 20070622
  4. DAI-KENCHU-TO [Concomitant]
     Dosage: UNK
     Dates: start: 20070622
  5. GASTER D [Concomitant]
     Dosage: UNK
     Dates: start: 20070622
  6. MAGLAX [Concomitant]
     Dosage: UNK
     Dates: start: 20070622
  7. BEVACIZUMAB [Suspect]
     Route: 041
     Dates: start: 20070823, end: 20070823
  8. FLUOROURACIL [Suspect]
     Dosage: UNK
     Route: 042
     Dates: start: 20070823, end: 20070824
  9. ISOVORIN [Suspect]
     Dosage: UNK
     Route: 042
     Dates: start: 20070823, end: 20070824
  10. ELPLAT [Suspect]
     Indication: COLON CANCER RECURRENT
     Dosage: UNK
     Route: 041
     Dates: start: 20070823, end: 20070823

REACTIONS (1)
  - REVERSIBLE POSTERIOR LEUKOENCEPHALOPATHY SYNDROME [None]
